FAERS Safety Report 8042538-4 (Version None)
Quarter: 2011Q4

REPORT INFORMATION
  Report Type: 
  Country: None (occurrence: None)
  Receive Date: 20111202
  Receipt Date: 20090901
  Transmission Date: 20120403
  Serious: Yes (Hospitalization, Disabling)
  Sender: FDA-Public Use
  Company Number: 2007-153550-NL

PATIENT
  Age: 40 Year
  Sex: Female
  Weight: 64 kg

DRUGS (4)
  1. EXCEDRIN [Concomitant]
  2. TRIAZOLAM [Concomitant]
  3. ESTROGENS CONJUGATED [Concomitant]
  4. NUVARING [Suspect]
     Indication: CONTRACEPTION
     Dosage: 1 DF; ;VAG
     Route: 067
     Dates: start: 20050301, end: 20061112

REACTIONS (17)
  - DEEP VEIN THROMBOSIS [None]
  - URINARY INCONTINENCE [None]
  - PAIN IN EXTREMITY [None]
  - DEPRESSION [None]
  - CEREBRAL INFARCTION [None]
  - FALL [None]
  - ROTATOR CUFF SYNDROME [None]
  - RASH [None]
  - METRORRHAGIA [None]
  - MENORRHAGIA [None]
  - EXTRAOCULAR MUSCLE PARESIS [None]
  - JOINT DISLOCATION [None]
  - PELVIC PAIN [None]
  - DYSMENORRHOEA [None]
  - UTEROVAGINAL PROLAPSE [None]
  - ADJUSTMENT DISORDER [None]
  - VAGINAL DISCHARGE [None]
